FAERS Safety Report 23134265 (Version 1)
Quarter: 2023Q4

REPORT INFORMATION
  Report Type: Spontaneous
  Country: CN (occurrence: CN)
  Receive Date: 20231101
  Receipt Date: 20231101
  Transmission Date: 20240110
  Serious: Yes (Hospitalization, Other)
  Sender: FDA-Public Use
  Company Number: CN-PFIZER INC-PV202300177424

PATIENT
  Age: 55 Year
  Sex: Female
  Weight: 59.4 kg

DRUGS (3)
  1. PACLITAXEL [Suspect]
     Active Substance: PACLITAXEL
     Indication: Breast neoplasm
     Dosage: 120 MG, 1X/DAY
     Route: 041
     Dates: start: 20230714, end: 20230714
  2. KEYTRUDA [Suspect]
     Active Substance: PEMBROLIZUMAB
     Indication: Breast neoplasm
     Dosage: 200 MG, 1X/DAY
     Route: 041
     Dates: start: 20230713, end: 20230713
  3. CARBOPLATIN [Suspect]
     Active Substance: CARBOPLATIN
     Indication: Breast neoplasm
     Dosage: 200 MG, 1X/DAY
     Route: 041
     Dates: start: 20230714, end: 20230714

REACTIONS (2)
  - Acute kidney injury [Recovering/Resolving]
  - Renal impairment [Recovering/Resolving]

NARRATIVE: CASE EVENT DATE: 20230821
